FAERS Safety Report 8499579-2 (Version None)
Quarter: 2012Q3

REPORT INFORMATION
  Report Type: 
  Country: None (occurrence: None)
  Receive Date: 20120710
  Receipt Date: 20120702
  Transmission Date: 20120928
  Serious: Yes (Hospitalization, Other)
  Sender: FDA-Public Use
  Company Number: BR-US-EMD SERONO, INC.-7145033

PATIENT
  Sex: Female

DRUGS (7)
  1. PROPRANOLOL [Concomitant]
     Indication: PRODUCT USED FOR UNKNOWN INDICATION
  2. REBIF [Suspect]
     Indication: RELAPSING-REMITTING MULTIPLE SCLEROSIS
     Dates: start: 20111019
  3. VACCINE FLU [Suspect]
     Indication: INFLUENZA
     Dates: start: 20120517
  4. BACOFLEN (BACLOFEN) [Concomitant]
     Indication: PRODUCT USED FOR UNKNOWN INDICATION
  5. ACETAMINOPHEN [Concomitant]
     Indication: PRODUCT USED FOR UNKNOWN INDICATION
  6. CARBAMAZEPINE [Concomitant]
     Indication: PRODUCT USED FOR UNKNOWN INDICATION
  7. DIAMOX [Concomitant]
     Indication: PRODUCT USED FOR UNKNOWN INDICATION

REACTIONS (4)
  - BALANCE DISORDER [None]
  - PNEUMONIA [None]
  - INFLUENZA LIKE ILLNESS [None]
  - MUSCLE TWITCHING [None]
